FAERS Safety Report 4910901-3 (Version None)
Quarter: 2006Q1

REPORT INFORMATION
  Report Type: 
  Country: None (occurrence: None)
  Receive Date: 20060214
  Receipt Date: 20060130
  Transmission Date: 20060701
  Serious: Yes (Life-Threatening, Hospitalization)
  Sender: FDA-Public Use
  Company Number: 2006PK00279

PATIENT
  Age: 336 Month
  Sex: Male
  Weight: 100 kg

DRUGS (6)
  1. SEROQUEL [Suspect]
     Indication: SCHIZOAFFECTIVE DISORDER
     Route: 048
     Dates: start: 20060125, end: 20060126
  2. SEROQUEL [Suspect]
     Indication: DRUG LEVEL CHANGED
     Route: 048
     Dates: start: 20060125, end: 20060126
  3. SEROQUEL [Suspect]
     Indication: PROPHYLAXIS
     Route: 048
     Dates: start: 20060125, end: 20060126
  4. QUILONUM RETARD [Concomitant]
     Indication: SCHIZOAFFECTIVE DISORDER
     Route: 048
     Dates: start: 20051121
  5. HALDOL [Concomitant]
     Indication: SCHIZOAFFECTIVE DISORDER
     Route: 048
     Dates: start: 20051121
  6. AKINETON [Concomitant]
     Indication: EXTRAPYRAMIDAL DISORDER
     Route: 048
     Dates: start: 20060125

REACTIONS (4)
  - BRADYCARDIA [None]
  - HYPOGLYCAEMIA [None]
  - HYPOTENSION [None]
  - SYNCOPE [None]
